FAERS Safety Report 7557144-5 (Version None)
Quarter: 2011Q2

REPORT INFORMATION
  Report Type: 
  Country: None (occurrence: None)
  Receive Date: 20110620
  Receipt Date: 20110610
  Transmission Date: 20111010
  Serious: Yes (Other)
  Sender: FDA-Public Use
  Company Number: FR-ROCHE-740475

PATIENT
  Sex: Male
  Weight: 60 kg

DRUGS (4)
  1. PEG-INTERFERON ALFA 2A (RO 25-8310) [Suspect]
     Indication: HEPATITIS C
     Dosage: TEMPORARILY INTERRUPTED, DOSE FORM: NOT PROVIDED, LAST DOSE PRIOR TO SAE: 17 JULY 2010.
     Route: 042
     Dates: start: 20100717
  2. RIBAVIRIN [Suspect]
     Indication: HEPATITIS C
     Dosage: TEMPORARILY INTERRUPTED, DOSE FORM: NOT PROVIDED, LAST DOSE PRIOR TO SAE: 17 JULY 2010.
     Route: 048
     Dates: start: 20100717
  3. RIBAVIRIN [Suspect]
     Route: 048
     Dates: start: 20100921
  4. PEG-INTERFERON ALFA 2A (RO 25-8310) [Suspect]
     Dosage: THERAPY PERMANENTLY DISCONTINUED.
     Route: 042
     Dates: start: 20100921

REACTIONS (2)
  - RETINOPATHY [None]
  - VISUAL IMPAIRMENT [None]
